FAERS Safety Report 8035624-6 (Version None)
Quarter: 2012Q1

REPORT INFORMATION
  Report Type: 
  Country: None (occurrence: None)
  Receive Date: 20120111
  Receipt Date: 20120105
  Transmission Date: 20120608
  Serious: Yes (Death, Other)
  Sender: FDA-Public Use
  Company Number: DK-NAPPMUNDI-GBR-2011-0008919

PATIENT
  Age: 16 Year
  Sex: Male
  Weight: 67 kg

DRUGS (13)
  1. OXYCONTIN [Suspect]
     Indication: PRODUCT USED FOR UNKNOWN INDICATION
     Dosage: 160 MG, UNK
     Route: 055
  2. CODEINE SUL TAB [Interacting]
  3. ACETAMINOPHEN [Interacting]
  4. CANABOIDER [Interacting]
  5. PREDNISOLONE [Interacting]
     Indication: PRODUCT USED FOR UNKNOWN INDICATION
  6. HYDROXYZINE HCL [Interacting]
  7. BUPRENORPHINE [Interacting]
     Indication: PRODUCT USED FOR UNKNOWN INDICATION
  8. METAZEPAM [Interacting]
  9. CETIRIZINE HCL [Interacting]
  10. METHADONE HCL [Interacting]
  11. ASPIRIN [Interacting]
  12. CLONAZEPAM [Interacting]
  13. CLONAZEPAM [Interacting]

REACTIONS (4)
  - INTENTIONAL DRUG MISUSE [None]
  - ASPIRATION [None]
  - DRUG INTERACTION [None]
  - DRUG DIVERSION [None]
